FAERS Safety Report 25673342 (Version 1)
Quarter: 2025Q3

REPORT INFORMATION
  Report Type: Spontaneous
  Country: US (occurrence: US)
  Receive Date: 20250813
  Receipt Date: 20250813
  Transmission Date: 20251021
  Serious: No
  Sender: SANOFI AVENTIS
  Company Number: US-SANOFI-02617595

PATIENT
  Sex: Male

DRUGS (1)
  1. DUPIXENT [Suspect]
     Active Substance: DUPILUMAB
     Indication: Dermatitis atopic
     Dates: start: 2025

REACTIONS (5)
  - Ocular hyperaemia [Unknown]
  - Back pain [Unknown]
  - Headache [Unknown]
  - Dry eye [Unknown]
  - Spinal operation [Unknown]

NARRATIVE: CASE EVENT DATE: 20250701
